FAERS Safety Report 9066796 (Version 2)
Quarter: 2013Q2

REPORT INFORMATION
  Report Type: Spontaneous
  Country: IT (occurrence: IT)
  Receive Date: 20130214
  Receipt Date: 20130411
  Transmission Date: 20140414
  Serious: Yes (Hospitalization)
  Sender: FDA-Public Use
  Company Number: IT-GLAXOSMITHKLINE-B0856709A

PATIENT
  Age: 86 Year
  Sex: 0

DRUGS (7)
  1. RHYTHMOL [Suspect]
     Indication: PRODUCT USED FOR UNKNOWN INDICATION
     Dosage: 150MG THREE TIMES PER DAY
     Route: 048
     Dates: end: 20121221
  2. TRIATEC [Concomitant]
  3. TAPAZOLE [Concomitant]
  4. CARDIOASPIRIN [Concomitant]
  5. ANTRA [Concomitant]
  6. VENITRIN [Concomitant]
  7. SEQUACOR [Concomitant]

REACTIONS (4)
  - Cardiac failure [Unknown]
  - Chest pain [Not Recovered/Not Resolved]
  - Malaise [Unknown]
  - Fatigue [Unknown]
